FAERS Safety Report 20437713 (Version 1)
Quarter: 2022Q1

REPORT INFORMATION
  Report Type: Spontaneous
  Country: CN (occurrence: CN)
  Receive Date: 20220207
  Receipt Date: 20220207
  Transmission Date: 20220423
  Serious: Yes (Life-Threatening, Hospitalization)
  Sender: FDA-Public Use
  Company Number: CN-BAXTER-2022BAX002301

PATIENT
  Age: 65 Year
  Sex: Female
  Weight: 53 kg

DRUGS (12)
  1. CYCLOPHOSPHAMIDE [Suspect]
     Active Substance: CYCLOPHOSPHAMIDE
     Indication: Diffuse large B-cell lymphoma
     Dosage: CYCLOPHOSPHAMIDE FOR INJECTION 1.1 G + 0.9% SODIUM CHLORIDE INJECTION 500 ML
     Route: 041
     Dates: start: 20220120, end: 20220120
  2. CYCLOPHOSPHAMIDE [Suspect]
     Active Substance: CYCLOPHOSPHAMIDE
     Dosage: DOSE REINTRODUCED FOR CYCLOPHOSPHAMIDE FOR INJECTION + 0.9% SODIUM CHLORIDE INJECTION
     Route: 041
  3. SODIUM CHLORIDE [Suspect]
     Active Substance: SODIUM CHLORIDE
     Indication: Medication dilution
     Dosage: CYCLOPHOSPHAMIDE FOR INJECTION 1.1 G + 0.9% SODIUM CHLORIDE INJECTION.
     Route: 041
     Dates: start: 20220120, end: 20220120
  4. SODIUM CHLORIDE [Suspect]
     Active Substance: SODIUM CHLORIDE
     Dosage: VINCRISTINE SULFATE FOR INJECTION 2 MG + 0.9% SODIUM CHLORIDE INJECTION 100 ML
     Route: 041
     Dates: start: 20220120, end: 20220120
  5. SODIUM CHLORIDE [Suspect]
     Active Substance: SODIUM CHLORIDE
     Dosage: DOSE REINTRODUCED FOR CYCLOPHOSPHAMIDE FOR INJECTION + 0.9% SODIUM CHLORIDE INJECTION
     Route: 041
  6. SODIUM CHLORIDE [Suspect]
     Active Substance: SODIUM CHLORIDE
     Dosage: DOSE REINTRODUCED FOR 0.9% SODIUM CHLORIDE INJECTION + VINCRISTINE SULFATE FOR INJECTION
     Route: 041
  7. DEXTROSE [Suspect]
     Active Substance: DEXTROSE
     Indication: Medication dilution
     Dosage: 5% GLUCOSE INJECTION 250 ML + PIRARUBICIN HYDROCHLORIDE FOR INJECTION 75 MG
     Route: 041
     Dates: start: 20220120, end: 20220120
  8. DEXTROSE [Suspect]
     Active Substance: DEXTROSE
     Dosage: DOSE REINTRODUCED FOR 5% GLUCOSE INJECTION + PIRARUBICIN HYDROCHLORIDE FOR INJECTION
     Route: 041
  9. PIRARUBICIN HYDROCHLORIDE [Suspect]
     Active Substance: PIRARUBICIN HYDROCHLORIDE
     Indication: Diffuse large B-cell lymphoma
     Dosage: PIRARUBICIN HYDROCHLORIDE FOR INJECTION 75 MG + 5% GLUCOSE INJECTION 250 ML
     Route: 041
     Dates: start: 20220120, end: 20220120
  10. PIRARUBICIN HYDROCHLORIDE [Suspect]
     Active Substance: PIRARUBICIN HYDROCHLORIDE
     Dosage: DOSE REINTRODUCED FOR PIRARUBICIN HYDROCHLORIDE FOR INJECTION + 5% GLUCOSE INJECTION
     Route: 041
  11. VINCRISTINE SULFATE [Suspect]
     Active Substance: VINCRISTINE SULFATE
     Indication: Diffuse large B-cell lymphoma
     Dosage: VINCRISTINE SULFATE FOR INJECTION 2 MG + 0.9% SODIUM CHLORIDE INJECTION 100 ML
     Route: 041
     Dates: start: 20220120, end: 20220120
  12. VINCRISTINE SULFATE [Suspect]
     Active Substance: VINCRISTINE SULFATE
     Dosage: DOSE REINTRODUCED FOR VINCRISTINE SULFATE FOR INJECTION + 0.9% SODIUM CHLORIDE INJECTION
     Route: 041

REACTIONS (1)
  - Myelosuppression [Unknown]

NARRATIVE: CASE EVENT DATE: 20220123
